FAERS Safety Report 5540624-1 (Version None)
Quarter: 2007Q4

REPORT INFORMATION
  Report Type: 
  Country: None (occurrence: None)
  Receive Date: 20071129
  Receipt Date: 20070529
  Transmission Date: 20080405
  Serious: Yes (Hospitalization, Other)
  Sender: FDA-Public Use
  Company Number: US200703002416

PATIENT
  Age: 50 Year
  Sex: Male
  Weight: 127 kg

DRUGS (4)
  1. ZYPREXA [Suspect]
     Dosage: 20 MG
     Dates: start: 20031001, end: 20050601
  2. REMERON [Concomitant]
  3. ZOLOFT [Concomitant]
  4. ABILIFY [Concomitant]

REACTIONS (11)
  - CARDIAC DISORDER [None]
  - CATARACT OPERATION [None]
  - CEREBROVASCULAR ACCIDENT [None]
  - DIABETES MELLITUS [None]
  - DIABETIC COMA [None]
  - DIABETIC KETOACIDOSIS [None]
  - HYPERGLYCAEMIA [None]
  - HYPERTENSION [None]
  - MYOCARDIAL ISCHAEMIA [None]
  - PANCREATITIS [None]
  - VISION BLURRED [None]
